FAERS Safety Report 5946921-X (Version None)
Quarter: 2008Q4

REPORT INFORMATION
  Report Type: 
  Country: None (occurrence: None)
  Receive Date: 20081110
  Receipt Date: 20081107
  Transmission Date: 20090506
  Serious: Yes (Hospitalization)
  Sender: FDA-Public Use
  Company Number: CO-WYE-H06197108

PATIENT
  Sex: Male

DRUGS (1)
  1. TAZOCIN [Suspect]
     Indication: PNEUMONIA KLEBSIELLA
     Route: 042
     Dates: start: 20080905

REACTIONS (2)
  - DRUG INEFFECTIVE [None]
  - PNEUMONIA KLEBSIELLA [None]
